FAERS Safety Report 22539728 (Version 4)
Quarter: 2023Q4

REPORT INFORMATION
  Report Type: Report from Study
  Country: BR (occurrence: None)
  Receive Date: 20230609
  Receipt Date: 20231129
  Transmission Date: 20240110
  Serious: Yes (Hospitalization)
  Sender: FDA-Public Use
  Company Number: BR-ROCHE-3362438

PATIENT
  Age: 71 Year
  Sex: Female
  Weight: 65 kg

DRUGS (16)
  1. PERTUZUMAB\TRASTUZUMAB [Suspect]
     Active Substance: PERTUZUMAB\TRASTUZUMAB
     Indication: HER2 positive breast cancer
     Dosage: DOSE LAST STUDY DRUG ADMIN PRIOR AE AND SAE: 1200 MG?DOSE OF STUDY DRUG FIRST ADMINISTERED 1200 AND
     Route: 058
     Dates: start: 20230504
  2. DOXORUBICIN [Suspect]
     Active Substance: DOXORUBICIN
     Indication: HER2 positive breast cancer
     Route: 042
     Dates: start: 20230215
  3. PACLITAXEL [Suspect]
     Active Substance: PACLITAXEL
     Indication: HER2 positive breast cancer
     Dosage: START DATE OF MOST RECENT DOSE OF STUDY DRUG PRIOR TO AE: 25/MAY/2023?END DATE OF MOST RECENT DOSE O
     Route: 042
     Dates: start: 20230504
  4. CYCLOPHOSPHAMIDE [Suspect]
     Active Substance: CYCLOPHOSPHAMIDE
     Indication: HER2 positive breast cancer
     Route: 042
     Dates: start: 20230215
  5. DONEPEZIL [Concomitant]
     Active Substance: DONEPEZIL
     Indication: Confusional state
     Route: 048
     Dates: start: 202203
  6. MEMANTINE [Concomitant]
     Active Substance: MEMANTINE
     Indication: Confusional state
     Route: 048
     Dates: start: 202203
  7. VENLAFAXINE [Concomitant]
     Active Substance: VENLAFAXINE HYDROCHLORIDE
     Indication: Depression
     Route: 048
     Dates: start: 202004
  8. OLANZAPINE [Concomitant]
     Active Substance: OLANZAPINE
     Indication: Schizophrenia
     Route: 048
     Dates: start: 202004
  9. DEXAMETHASONE [Concomitant]
     Active Substance: DEXAMETHASONE
     Route: 042
     Dates: start: 20230504, end: 20230504
  10. DEXAMETHASONE [Concomitant]
     Active Substance: DEXAMETHASONE
     Route: 042
     Dates: start: 20230511, end: 20230511
  11. DEXAMETHASONE [Concomitant]
     Active Substance: DEXAMETHASONE
     Route: 042
     Dates: start: 20230525, end: 20230525
  12. DIPHENHYDRAMINE [Concomitant]
     Active Substance: DIPHENHYDRAMINE
     Route: 042
     Dates: start: 20230504, end: 20230504
  13. DIPHENHYDRAMINE [Concomitant]
     Active Substance: DIPHENHYDRAMINE
     Route: 042
     Dates: start: 20230511, end: 20230511
  14. DIPHENHYDRAMINE [Concomitant]
     Active Substance: DIPHENHYDRAMINE
     Route: 042
     Dates: start: 20230525, end: 20230525
  15. HUMAN RED BLOOD CELL [Concomitant]
     Active Substance: HUMAN RED BLOOD CELL
     Indication: Anaemia
     Route: 042
     Dates: start: 20230502, end: 20230502
  16. FERROUS SULFATE [Concomitant]
     Active Substance: FERROUS SULFATE
     Indication: Anaemia
     Route: 048
     Dates: start: 20230425

REACTIONS (1)
  - Pyelonephritis [Recovered/Resolved]

NARRATIVE: CASE EVENT DATE: 20230601
